FAERS Safety Report 19148802 (Version 14)
Quarter: 2023Q2

REPORT INFORMATION
  Report Type: Spontaneous
  Country: CA (occurrence: CA)
  Receive Date: 20210416
  Receipt Date: 20230413
  Transmission Date: 20230722
  Serious: Yes (Life-Threatening, Other)
  Sender: FDA-Public Use
  Company Number: CA-ANIPHARMA-2021-CA-000457

PATIENT
  Age: 65 Year
  Sex: Male

DRUGS (72)
  1. CANDESARTAN CILEXETIL [Suspect]
     Active Substance: CANDESARTAN CILEXETIL
     Indication: Product used for unknown indication
     Dosage: 32 MG DAILY / 1 DF DAILY
     Route: 048
  2. BETAMETHASONE\CLOTRIMAZOLE [Suspect]
     Active Substance: BETAMETHASONE\CLOTRIMAZOLE
     Dosage: UNKNOWN DOSE AND FREQUENCY
     Route: 065
  3. DOMPERIDONE MALEATE [Suspect]
     Active Substance: DOMPERIDONE MALEATE
     Dosage: 10 MG BID / 1 DF DAILY / 1 DF Q12H / DOSE TEXT: 1 EVERY 1 DAYS / DOSE TEXT: 2 EVERY 1 DAYS / 20 MG B
     Route: 065
  4. FLOMAX [Suspect]
     Active Substance: TAMSULOSIN HYDROCHLORIDE
     Dosage: 1 DF DAILY / UNK / UNK / UNK / UNK / UNK / UNK
     Route: 065
  5. FUROSEMIDE [Suspect]
     Active Substance: FUROSEMIDE
     Dosage: 40 MG DAILY / 1 DF DAILY / DOSE TEXT: 1 EVERY 1 DAYS / UNK / 1 DF DAILY / UNK / 2 DF DAILY
     Route: 065
  6. GLUCAGON [Suspect]
     Active Substance: GLUCAGON
     Dosage: 1 MG UNK
     Route: 065
  7. IMURAN [Suspect]
     Active Substance: AZATHIOPRINE
     Dosage: 1 DF DAILY / UNK
     Route: 065
  8. INSULIN GLARGINE [Suspect]
     Active Substance: INSULIN GLARGINE
     Dosage: 1 DF DAILY / UNK
     Route: 058
  9. LASIX [Suspect]
     Active Substance: FUROSEMIDE
     Dosage: 1 DF QD / UNK
     Route: 065
  10. LEVOFLOXACIN [Suspect]
     Active Substance: LEVOFLOXACIN
     Dosage: 750 MG DAILY / 3 DF DAILY / DOSE TEXT: 3 EVERY 1 DAYS
     Route: 065
  11. PANTOPRAZOLE MAGNESIUM [Suspect]
     Active Substance: PANTOPRAZOLE MAGNESIUM
     Dosage: 2 DF DAILY / UNK / DOSE TEXT: 2 EVERY 1 DAYS
     Route: 065
  12. MAGNESIUM OXIDE [Suspect]
     Active Substance: MAGNESIUM OXIDE
     Dosage: 420 MG BID / 1 DF DAILY / 2 DF Q12H / 1 DF BID / UNK / UNK / UNK / UNK / 2 DF DAILY
     Route: 065
  13. PREDNISONE [Suspect]
     Active Substance: PREDNISONE
     Dosage: 80 MG DAILY / DOSE TEXT: UNKNOWN DOSE AND FREQUENCY / 50 MG DAILY / UNK / DOSE TEXT: EVERY 1 DAYS /
     Route: 065
  14. ALBUTEROL [Suspect]
     Active Substance: ALBUTEROL
     Dosage: 100 UG DAILY / UNK / 1 DF DAILY
     Route: 065
  15. ALBUTEROL SULFATE [Suspect]
     Active Substance: ALBUTEROL SULFATE
     Dosage: UNKNOWN DOSE AND FREQUENCY
     Route: 065
  16. HERBALS\SENNOSIDES [Suspect]
     Active Substance: HERBALS\SENNOSIDES
     Dosage: UNKNOWN DOSE AND FREQUENCY
     Route: 065
  17. TAMSULOSIN [Suspect]
     Active Substance: TAMSULOSIN
     Dosage: 1 DF DAILY / DOSE TEXT: 1 EVERY 1 DAYS
     Route: 065
  18. TRELEGY ELLIPTA [Suspect]
     Active Substance: FLUTICASONE FUROATE\UMECLIDINIUM BROMIDE\VILANTEROL TRIFENATATE
     Dosage: 1 DF DAILY / DOSE TEXT: 1 EVERY 1 DAYS
     Route: 065
  19. ANORO ELLIPTA [Suspect]
     Active Substance: UMECLIDINIUM BROMIDE\VILANTEROL TRIFENATATE
     Dosage: 1 DF DAILY / UNK / DOSE TEXT: 1 EVERY 1 DAYS
     Route: 065
  20. ERGOCALCIFEROL [Suspect]
     Active Substance: ERGOCALCIFEROL
     Route: 065
  21. SULFATRIM [Suspect]
     Active Substance: SULFAMETHOXAZOLE\TRIMETHOPRIM
     Dosage: UNKNOWN DOSE AND FREQUENCY
     Route: 065
  22. CANDESARTAN CILEXETIL AND HYDROCHLOROTHIAZIDE [Suspect]
     Active Substance: CANDESARTAN CILEXETIL\HYDROCHLOROTHIAZIDE
     Indication: Product used for unknown indication
     Dosage: 1 DF DAILY / DOSE TEXT: 1 EVERY 1 DAYS
     Route: 048
  23. INSULIN ASPART [Suspect]
     Active Substance: INSULIN ASPART
     Dosage: UNKNOWN DOSE AND FREQUENCY
     Route: 065
  24. LEXIN [Suspect]
     Active Substance: CEPHALEXIN
     Dosage: UNKNOWN DOSE AND FREQUENCY
     Route: 065
  25. PANTOPRAZOLE SODIUM [Suspect]
     Active Substance: PANTOPRAZOLE SODIUM
     Dosage: 40 UG BID / 1 DF Q12H / DOSE TEXT: 2 EVERY 1 DAYS
     Route: 065
  26. SENNOSIDES A AND B [Suspect]
     Active Substance: SENNOSIDES A AND B
     Route: 065
  27. LEVOFLOXACIN [Suspect]
     Active Substance: LEVOFLOXACIN
     Dosage: 3 DF DAILY
     Route: 065
  28. VITAMIN D [Suspect]
     Active Substance: VITAMIN D NOS
     Dosage: UNKNOWN DOSE AND FREQUENCY
     Route: 065
  29. BETAMETHASONE [Suspect]
     Active Substance: BETAMETHASONE
     Dosage: UNKNOWN DOSE AND FREQUENCY
     Route: 065
  30. CLOTRIMAZOLE [Suspect]
     Active Substance: CLOTRIMAZOLE
     Dosage: UNKNOWN DOSE AND FREQUENCY
     Route: 065
  31. BETA GLUCAN [Suspect]
     Active Substance: BETA GLUCAN
     Route: 065
  32. BUDESONIDE [Suspect]
     Active Substance: BUDESONIDE
     Route: 065
  33. SULFADIAZINE\TRIMETHOPRIM [Suspect]
     Active Substance: SULFADIAZINE\TRIMETHOPRIM
     Route: 065
  34. PANTOPRAZOLE MAGNESIUM [Suspect]
     Active Substance: PANTOPRAZOLE MAGNESIUM
     Route: 065
  35. UMECLIDINIUM BROMIDE [Suspect]
     Active Substance: UMECLIDINIUM BROMIDE
     Route: 065
  36. UMECLIDINIUM BROMIDE\VILANTEROL TRIFENATATE [Suspect]
     Active Substance: UMECLIDINIUM BROMIDE\VILANTEROL TRIFENATATE
     Route: 065
  37. VITAMIN D3 [Suspect]
     Active Substance: CHOLECALCIFEROL
     Route: 065
  38. ALBUTEROL [Suspect]
     Active Substance: ALBUTEROL
     Route: 065
  39. CEFUROXIME AXETIL [Suspect]
     Active Substance: CEFUROXIME AXETIL
     Dosage: 500 MG DAILY / 1 DF DAILY / UNK / UNK / UNK / UNK / UNK / UNK / 500 MG DAILY
     Route: 065
  40. AZITHROMYCIN ANHYDROUS [Suspect]
     Active Substance: AZITHROMYCIN ANHYDROUS
     Dosage: 1 DF DAILY
     Route: 065
  41. CALCIUM CARBONATE [Suspect]
     Active Substance: CALCIUM CARBONATE
     Dosage: 500 MG DAILY / 1 DF DAILY / 2 DF DAILY / DOSE TEXT: 1 EVERY 1 DAYS / 1 DF DAILY
     Route: 065
  42. ALENDRONATE SODIUM [Suspect]
     Active Substance: ALENDRONATE SODIUM
     Dosage: 70 MG WEEK / 1 DF WEEK / UNK
     Route: 065
  43. SENNOSIDES [Suspect]
     Active Substance: SENNOSIDES
     Route: 065
  44. AZITHROMYCIN DIHYDRATE [Suspect]
     Active Substance: AZITHROMYCIN DIHYDRATE
     Dosage: 2 DF DAILY / 1 DF DAILY / UNK
     Route: 065
  45. CEPHALEXIN [Suspect]
     Active Substance: CEPHALEXIN
     Route: 065
  46. GLUCAGON HYDROCHLORIDE [Suspect]
     Active Substance: GLUCAGON HYDROCHLORIDE
     Route: 065
  47. MORNIFLUMATE [Suspect]
     Active Substance: MORNIFLUMATE
     Route: 065
  48. BETAMETHASONE DIPROPIONATE [Suspect]
     Active Substance: BETAMETHASONE DIPROPIONATE
     Dosage: UNKNOWN DOSE AND FREQUENCY
     Route: 065
  49. CEFUROXIME [Suspect]
     Active Substance: CEFUROXIME
     Dosage: 500 MG BID / 1 DF DAILY / 1 DF Q12H / DOSE TEXT: 1 EVERY 1 DAYS / DOSE TEXT: 2 EVERY 1 DAYS
     Route: 065
  50. SENNA [Suspect]
     Active Substance: SENNA LEAF\SENNOSIDES\SENNOSIDES A AND B
     Dosage: UNKNOWN DOSE AND FREQUENCY
     Route: 065
  51. METFORMIN HYDROCHLORIDE [Suspect]
     Active Substance: METFORMIN HYDROCHLORIDE
     Dosage: 4 DF DAILY / 500 MG BID / 2 DF Q12H / DOSE TEXT: 1 EVERY 1 DAYS / 1 DF DAILY / 2 DF DAILY
     Route: 065
  52. AZATHIOPRINE SODIUM [Suspect]
     Active Substance: AZATHIOPRINE SODIUM
     Route: 065
  53. BETA GLUCAN [Suspect]
     Active Substance: BETA GLUCAN
     Route: 065
  54. CEFUROXIME AXETIL [Suspect]
     Active Substance: CEFUROXIME AXETIL
     Route: 065
  55. PANTOPRAZOLE SODIUM [Suspect]
     Active Substance: PANTOPRAZOLE SODIUM
     Dosage: 40 MG BID / UNK / UNK
     Route: 065
  56. CHOLECALCIFEROL [Suspect]
     Active Substance: CHOLECALCIFEROL
     Route: 065
  57. SULFADIAZINE [Suspect]
     Active Substance: SULFADIAZINE
     Route: 065
  58. TAMSULOSIN [Suspect]
     Active Substance: TAMSULOSIN
     Route: 065
  59. LEVOFLOXACIN [Suspect]
     Active Substance: LEVOFLOXACIN
     Route: 065
  60. FLOMAX [Suspect]
     Active Substance: TAMSULOSIN HYDROCHLORIDE
     Route: 065
  61. SULFATRIM [Suspect]
     Active Substance: SULFAMETHOXAZOLE\TRIMETHOPRIM
     Route: 065
  62. ALENDRONATE [Suspect]
     Active Substance: ALENDRONATE SODIUM
     Dosage: 70 MG WEEK / 1 DF WEEK
     Route: 065
  63. LIRAGLUTIDE [Suspect]
     Active Substance: LIRAGLUTIDE
     Route: 065
  64. PENICILLIN V POTASSIUM [Concomitant]
     Active Substance: PENICILLIN V POTASSIUM
     Route: 065
  65. SULFAMETHOXAZOLE\TRIMETHOPRIM [Concomitant]
     Active Substance: SULFAMETHOXAZOLE\TRIMETHOPRIM
     Route: 065
  66. SERTRALINE HYDROCHLORIDE [Suspect]
     Active Substance: SERTRALINE HYDROCHLORIDE
     Route: 065
  67. SPIRIVA [Suspect]
     Active Substance: TIOTROPIUM BROMIDE MONOHYDRATE
     Route: 065
  68. NUCALA [Suspect]
     Active Substance: MEPOLIZUMAB
     Route: 065
  69. LEVOTHYROXINE SODIUM [Suspect]
     Active Substance: LEVOTHYROXINE SODIUM
     Route: 065
  70. MONTELUKAST SODIUM [Suspect]
     Active Substance: MONTELUKAST SODIUM
     Route: 065
  71. AZATHIOPRINE [Suspect]
     Active Substance: AZATHIOPRINE
     Dosage: 100 MG QD / UNK / 1 DF DAILY / UNK / 100 MG DAILY / 2 DF DAILY / UNK / UNK / UNK
     Route: 065
  72. AZITHROMYCIN [Suspect]
     Active Substance: AZITHROMYCIN
     Dosage: 1 DF BID / 250 MG DAILY / 2 DF DAILY / DOSE TEXT: 2 EVERY 1 DAYS / DOSE TEXT: 1 EVERY 1 DAYS / 2 DF
     Route: 065

REACTIONS (18)
  - Asthma [Unknown]
  - Pain in extremity [Unknown]
  - Pulmonary alveolar haemorrhage [Unknown]
  - Pulmonary fibrosis [Unknown]
  - Pulmonary vasculitis [Unknown]
  - Respiratory symptom [Unknown]
  - Sleep disorder due to a general medical condition [Unknown]
  - Vasculitis [Unknown]
  - Wheezing [Unknown]
  - Condition aggravated [Unknown]
  - Hypothyroidism [Unknown]
  - Dyspnoea [Unknown]
  - Haemoptysis [Unknown]
  - Loss of personal independence in daily activities [Unknown]
  - Lung disorder [Unknown]
  - Neuritis [Unknown]
  - Neurological symptom [Unknown]
  - Obstructive airways disorder [Unknown]
